FAERS Safety Report 20207562 (Version 1)
Quarter: 2021Q4

REPORT INFORMATION
  Report Type: Spontaneous
  Country: US (occurrence: US)
  Receive Date: 20211220
  Receipt Date: 20211220
  Transmission Date: 20220303
  Serious: Yes (Other)
  Sender: FDA-Public Use
  Company Number: US-PFIZER INC-202101732898

PATIENT
  Age: 68 Year
  Sex: Female
  Weight: 45.351 kg

DRUGS (1)
  1. CHANTIX [Suspect]
     Active Substance: VARENICLINE TARTRATE
     Indication: Smoking cessation therapy
     Dosage: 1 MG, 2X/DAY
     Route: 048

REACTIONS (3)
  - Breast cancer [Unknown]
  - Abdominal discomfort [Unknown]
  - Recalled product administered [Unknown]

NARRATIVE: CASE EVENT DATE: 20161101
